FAERS Safety Report 4624925-7 (Version None)
Quarter: 2005Q2

REPORT INFORMATION
  Report Type: 
  Country: None (occurrence: None)
  Receive Date: 20050325
  Receipt Date: 20050112
  Transmission Date: 20051028
  Serious: No
  Sender: FDA-Public Use
  Company Number: USA050188047

PATIENT
  Age: 68 Year
  Sex: Female
  Weight: 91 kg

DRUGS (1)
  1. FORTEO [Suspect]
     Indication: SPINAL COLUMN STENOSIS
     Dosage: 20 UG/1 DAY
     Dates: start: 20050110

REACTIONS (2)
  - DRY SKIN [None]
  - SKIN BURNING SENSATION [None]
